FAERS Safety Report 4777381-2 (Version None)
Quarter: 2005Q3

REPORT INFORMATION
  Report Type: 
  Country: None (occurrence: None)
  Receive Date: 20050915
  Receipt Date: 20050907
  Transmission Date: 20060218
  Serious: Yes (Hospitalization)
  Sender: FDA-Public Use
  Company Number: 200512811GDS

PATIENT
  Age: 65 Year
  Sex: Female

DRUGS (3)
  1. ASPIRIN [Suspect]
  2. HEPARIN [Suspect]
     Dosage: INTRAVENOUS
     Route: 042
  3. INDOMETHACIN [Suspect]
     Dosage: 75 MG. TOTAL DAILY

REACTIONS (7)
  - GASTRIC DISORDER [None]
  - HEADACHE [None]
  - HEMIPARESIS [None]
  - HORNER'S SYNDROME [None]
  - HYPOREFLEXIA [None]
  - ISCHAEMIC STROKE [None]
  - TRANSIENT ISCHAEMIC ATTACK [None]
